FAERS Safety Report 5119944-0 (Version None)
Quarter: 2006Q3

REPORT INFORMATION
  Report Type: 
  Country: None (occurrence: None)
  Receive Date: 20060928
  Receipt Date: 20060922
  Transmission Date: 20061208
  Serious: Yes (Other)
  Sender: FDA-Public Use
  Company Number: HQWYE058922SEP06

PATIENT
  Age: 33 Year
  Sex: Female

DRUGS (2)
  1. NEOVLAR (LEVONORGESTREL/ETHINYL ESTRADIOL, TABLET) [Suspect]
     Indication: ORAL CONTRACEPTION
     Dosage: 1 TABLET 1X PER 1 DAY ORAL
     Route: 048
     Dates: start: 20010101
  2. ATENOLOL [Suspect]

REACTIONS (10)
  - DIZZINESS [None]
  - DRUG INTERACTION [None]
  - EMOTIONAL DISORDER [None]
  - HEART RATE INCREASED [None]
  - HYPERHIDROSIS [None]
  - HYPERTENSION [None]
  - MIGRAINE [None]
  - MYALGIA [None]
  - NECK PAIN [None]
  - NERVOUSNESS [None]
